FAERS Safety Report 11805562 (Version 1)
Quarter: 2015Q4

REPORT INFORMATION
  Report Type: Report from Study
  Country: US (occurrence: US)
  Receive Date: 20151207
  Receipt Date: 20151207
  Transmission Date: 20160305
  Serious: Yes (Other)
  Sender: FDA-Public Use
  Company Number: US-AMGEN-USASL2015128832

PATIENT
  Age: 50 Year
  Sex: Female

DRUGS (1)
  1. ENBREL [Suspect]
     Active Substance: ETANERCEPT
     Indication: PSORIASIS
     Dosage: 50 MG, QWK
     Route: 065
     Dates: start: 2015, end: 201511

REACTIONS (4)
  - Psoriasis [Unknown]
  - Rash [Unknown]
  - Drug ineffective [Unknown]
  - Autoimmune disorder [Unknown]

NARRATIVE: CASE EVENT DATE: 2015
